FAERS Safety Report 17788924 (Version 1)
Quarter: 2020Q2

REPORT INFORMATION
  Report Type: Spontaneous
  Country: US (occurrence: US)
  Receive Date: 20200515
  Receipt Date: 20200515
  Transmission Date: 20200714
  Serious: No
  Sender: FDA-Public Use
  Company Number: US-NOVAST LABORATORIES LTD.-2019NOV000015

PATIENT
  Age: 33 Year
  Sex: Female

DRUGS (2)
  1. FALMINA [Suspect]
     Active Substance: ETHINYL ESTRADIOL\LEVONORGESTREL
     Indication: VAGINAL HAEMORRHAGE
  2. FALMINA [Suspect]
     Active Substance: ETHINYL ESTRADIOL\LEVONORGESTREL
     Indication: BLOOD TESTOSTERONE INCREASED
     Dosage: UNK
     Route: 065
     Dates: start: 2019

REACTIONS (2)
  - Nausea [Unknown]
  - Migraine [Unknown]

NARRATIVE: CASE EVENT DATE: 2019
